FAERS Safety Report 9712787 (Version 1)
Quarter: 2013Q4

REPORT INFORMATION
  Report Type: Spontaneous
  Country: US (occurrence: US)
  Receive Date: 20131126
  Receipt Date: 20131126
  Transmission Date: 20140711
  Serious: No
  Sender: FDA-Public Use
  Company Number: US-BAYER-2013-144553

PATIENT
  Age: 27 Year
  Sex: Female
  Weight: 85 kg

DRUGS (2)
  1. ALEVE TABLET [Suspect]
     Indication: BACK PAIN
     Route: 048
  2. ALEVE TABLET [Suspect]
     Indication: BACK PAIN
     Dosage: 3 DF, BID
     Route: 048

REACTIONS (1)
  - Extra dose administered [None]
